FAERS Safety Report 5283182-1 (Version None)
Quarter: 2007Q2

REPORT INFORMATION
  Report Type: 
  Country: None (occurrence: None)
  Receive Date: 20070402
  Receipt Date: 20070330
  Transmission Date: 20071010
  Serious: Yes (Other)
  Sender: FDA-Public Use
  Company Number: AC2007-0032

PATIENT
  Age: 59 Year
  Sex: Female
  Weight: 81.6 kg

DRUGS (1)
  1. FLOLAN [Suspect]
     Dosage: 23.5NGKM UNKNOWN
     Route: 042
     Dates: start: 20021127

REACTIONS (2)
  - CATHETER RELATED COMPLICATION [None]
  - PHARMACEUTICAL PRODUCT COMPLAINT [None]
